FAERS Safety Report 10159480 (Version 2)
Quarter: 2014Q2

REPORT INFORMATION
  Report Type: Spontaneous
  Country: US (occurrence: US)
  Receive Date: 20140508
  Receipt Date: 20140527
  Transmission Date: 20141212
  Serious: Yes (Other)
  Sender: FDA-Public Use
  Company Number: US-JNJFOC-20140501886

PATIENT
  Age: 49 Year
  Sex: Female

DRUGS (4)
  1. REMICADE [Suspect]
     Indication: CROHN^S DISEASE
     Dosage: ALSO REPORTED AS 5 MG/KG
     Route: 042
     Dates: start: 20110907, end: 20140303
  2. MESALAMINE [Concomitant]
     Indication: CROHN^S DISEASE
     Route: 065
     Dates: start: 200910
  3. ESTROGEN [Concomitant]
     Indication: CONTRACEPTION
     Route: 065
  4. NORDETTE [Concomitant]
     Indication: CONTRACEPTION
     Dosage: 0.15 - 30 MG-MCG
     Route: 065

REACTIONS (3)
  - Antinuclear antibody positive [Not Recovered/Not Resolved]
  - Systemic lupus erythematosus rash [Not Recovered/Not Resolved]
  - Double stranded DNA antibody [Not Recovered/Not Resolved]
